FAERS Safety Report 7179638-7 (Version None)
Quarter: 2010Q4

REPORT INFORMATION
  Report Type: 
  Country: None (occurrence: None)
  Receive Date: 20101221
  Receipt Date: 20101213
  Transmission Date: 20110411
  Serious: Yes (Other)
  Sender: FDA-Public Use
  Company Number: US-SANOFI-AVENTIS-2010SA068873

PATIENT
  Age: 91 Year
  Sex: Female
  Weight: 47.62 kg

DRUGS (8)
  1. PLAVIX [Suspect]
     Route: 048
     Dates: start: 20100601
  2. PLAVIX [Suspect]
     Route: 048
     Dates: start: 20100601
  3. ASPIRIN [Concomitant]
  4. CHOLESTEROL- AND TRIGLYCERIDE REDUCERS [Concomitant]
  5. GLYBURIDE [Concomitant]
     Route: 048
  6. NIFEDIPINE [Concomitant]
     Route: 048
  7. POTASSIUM CHLORIDE [Concomitant]
  8. SIMVASTATIN [Concomitant]
     Route: 048

REACTIONS (11)
  - CONTUSION [None]
  - DECREASED APPETITE [None]
  - DEPRESSED MOOD [None]
  - DIARRHOEA [None]
  - DIZZINESS [None]
  - FATIGUE [None]
  - GOUT [None]
  - HEADACHE [None]
  - MALAISE [None]
  - PALLOR [None]
  - WEIGHT DECREASED [None]
